FAERS Safety Report 19138119 (Version 1)
Quarter: 2021Q2

REPORT INFORMATION
  Report Type: Spontaneous
  Country: US (occurrence: US)
  Receive Date: 20210415
  Receipt Date: 20210415
  Transmission Date: 20210717
  Serious: Yes (Death, Hospitalization)
  Sender: FDA-Public Use
  Company Number: US-MACLEODS PHARMACEUTICALS US LTD-MAC2021030771

PATIENT

DRUGS (8)
  1. DIDANOSINE. [Suspect]
     Active Substance: DIDANOSINE
     Indication: ANTIRETROVIRAL THERAPY
     Dosage: UNK
     Route: 065
     Dates: start: 1999
  2. TENOFOVIR [Suspect]
     Active Substance: TENOFOVIR
     Indication: ANTIRETROVIRAL THERAPY
     Dosage: UNK
     Route: 065
     Dates: start: 1999
  3. ATAZANAVIR. [Suspect]
     Active Substance: ATAZANAVIR
     Indication: ANTIRETROVIRAL THERAPY
     Dosage: UNK
     Route: 065
     Dates: start: 1999
  4. ETRAVIRINE [Suspect]
     Active Substance: ETRAVIRINE
     Indication: ANTIRETROVIRAL THERAPY
     Dosage: UNK
     Route: 065
  5. RALTEGRAVIR. [Suspect]
     Active Substance: RALTEGRAVIR
     Indication: ANTIRETROVIRAL THERAPY
     Dosage: UNK
     Route: 065
  6. LAMIVUDINE. [Suspect]
     Active Substance: LAMIVUDINE
     Indication: ANTIRETROVIRAL THERAPY
     Dosage: UNK
     Route: 065
  7. RITONAVIR. [Suspect]
     Active Substance: RITONAVIR
     Indication: ANTIRETROVIRAL THERAPY
     Dosage: UNK
     Route: 065
     Dates: start: 1999
  8. ENFUVIRTIDE. [Suspect]
     Active Substance: ENFUVIRTIDE
     Indication: ANTIRETROVIRAL THERAPY
     Dosage: UNK
     Route: 065

REACTIONS (13)
  - Pneumococcal sepsis [Unknown]
  - Hepatomegaly [Fatal]
  - Vanishing bile duct syndrome [Unknown]
  - Splenomegaly [Fatal]
  - Renal failure [Unknown]
  - Cytomegalovirus infection [Unknown]
  - Pancreatic enlargement [Unknown]
  - Anastomotic haemorrhage [Unknown]
  - Mitochondrial toxicity [Unknown]
  - Intussusception [Unknown]
  - Epstein-Barr virus infection [Unknown]
  - Haemorrhagic ascites [Fatal]
  - Hodgkin^s disease lymphocyte depletion type stage III [Fatal]
